FAERS Safety Report 15766830 (Version 1)
Quarter: 2018Q4

REPORT INFORMATION
  Report Type: Spontaneous
  Country: HU (occurrence: HU)
  Receive Date: 20181227
  Receipt Date: 20181227
  Transmission Date: 20190205
  Serious: Yes (Other)
  Sender: FDA-Public Use
  Company Number: HU-ASTRAZENECA-2018SF62661

PATIENT
  Age: 40 Year
  Sex: Male

DRUGS (13)
  1. PERINDOPRIL [Concomitant]
     Active Substance: PERINDOPRIL
     Route: 048
  2. ROXERA [Suspect]
     Active Substance: ROSUVASTATIN CALCIUM
     Route: 048
  3. TENAXUM [Concomitant]
     Active Substance: RILMENIDINE
     Route: 048
  4. DROTAVERINE [Concomitant]
     Active Substance: DROTAVERINE
     Route: 048
  5. TRIMETAZIDINE [Concomitant]
     Active Substance: TRIMETAZIDINE
     Route: 048
  6. ALGOPYRIN [Concomitant]
     Active Substance: METAMIZOLE SODIUM
     Route: 048
  7. ESCITALOPRAM [Concomitant]
     Active Substance: ESCITALOPRAM OXALATE
     Route: 048
  8. PANTOPRAZOL [Concomitant]
     Active Substance: PANTOPRAZOLE SODIUM
     Route: 048
  9. NEBIVOLOL. [Concomitant]
     Active Substance: NEBIVOLOL
     Route: 048
  10. APO-FAMOTIDIN [Concomitant]
     Route: 048
  11. INDAPAMIDE. [Concomitant]
     Active Substance: INDAPAMIDE
     Route: 048
  12. APRANAX [Concomitant]
     Active Substance: NAPROXEN
     Route: 048
  13. FRONTIN [Concomitant]
     Active Substance: ALPRAZOLAM
     Dosage: 0.5MG EVERY 8 - 12 HOURS
     Route: 048

REACTIONS (4)
  - Breast pain [Recovered/Resolved]
  - Breast swelling [Recovered/Resolved]
  - Breast inflammation [Recovered/Resolved]
  - Breast mass [Recovered/Resolved]
